FAERS Safety Report 6762422-3 (Version None)
Quarter: 2010Q2

REPORT INFORMATION
  Report Type: 
  Country: None (occurrence: None)
  Receive Date: 20100609
  Receipt Date: 20100528
  Transmission Date: 20101027
  Serious: Yes (Hospitalization)
  Sender: FDA-Public Use
  Company Number: PHHY2010US34439

PATIENT
  Sex: Male
  Weight: 63.8 kg

DRUGS (1)
  1. EXJADE [Suspect]
     Indication: MULTIPLE MYELOMA
     Dosage: 1000 MG/DAY
     Route: 048
     Dates: start: 20080915

REACTIONS (1)
  - ROTATOR CUFF REPAIR [None]
